FAERS Safety Report 24053350 (Version 1)
Quarter: 2024Q3

REPORT INFORMATION
  Report Type: Spontaneous
  Country: PL (occurrence: PL)
  Receive Date: 20240705
  Receipt Date: 20240705
  Transmission Date: 20241017
  Serious: Yes (Other)
  Sender: GILEAD
  Company Number: PL-GILEAD-2024-0678692

PATIENT
  Sex: Male

DRUGS (1)
  1. BIKTARVY [Suspect]
     Active Substance: BICTEGRAVIR SODIUM\EMTRICITABINE\TENOFOVIR ALAFENAMIDE FUMARATE
     Indication: HIV infection
     Dosage: UNK
     Route: 065

REACTIONS (4)
  - Monkeypox [Unknown]
  - Spinal pain [Unknown]
  - Bowel movement irregularity [Unknown]
  - Chlamydial infection [Unknown]

NARRATIVE: CASE EVENT DATE: 20240101
